FAERS Safety Report 10227652 (Version 2)
Quarter: 2014Q2

REPORT INFORMATION
  Report Type: Other
  Country: US (occurrence: US)
  Receive Date: 20140610
  Receipt Date: 20140610
  Transmission Date: 20141212
  Serious: Yes (Hospitalization, Other)
  Sender: FDA-Public Use
  Company Number: US-GSKPPD-2014GSK000292

PATIENT
  Age: 60 Year
  Sex: Female

DRUGS (3)
  1. AVANDIA [Suspect]
     Indication: DIABETES MELLITUS
     Route: 048
     Dates: start: 19991014
  2. LASIX [Concomitant]
  3. ZESTRIL [Concomitant]

REACTIONS (2)
  - Cardiac failure congestive [None]
  - Acute myocardial infarction [Recovered/Resolved]
